FAERS Safety Report 8657572 (Version 2)
Quarter: 2012Q4

REPORT INFORMATION
  Report Type: Report from Study
  Country: US (occurrence: US)
  Receive Date: 20120710
  Receipt Date: 20121022
  Transmission Date: 20130627
  Serious: Yes (Other)
  Sender: FDA-Public Use
  Company Number: US-US-EMD SERONO, INC.-7145044

PATIENT
  Sex: Female

DRUGS (2)
  1. REBIF [Suspect]
     Indication: MULTIPLE SCLEROSIS
     Route: 058
     Dates: start: 20080102
  2. TYLENOL [Concomitant]
     Indication: PREMEDICATION

REACTIONS (11)
  - Hip fracture [Recovering/Resolving]
  - Spinal compression fracture [Recovering/Resolving]
  - Intervertebral disc protrusion [Recovering/Resolving]
  - Nerve injury [Recovering/Resolving]
  - Osteoporosis [Not Recovered/Not Resolved]
  - Fall [Recovering/Resolving]
  - Foot fracture [Recovering/Resolving]
  - Presyncope [Recovered/Resolved]
  - Nausea [Recovered/Resolved]
  - Blood cholesterol increased [Not Recovered/Not Resolved]
  - Injection site bruising [Not Recovered/Not Resolved]
